FAERS Safety Report 12101022 (Version 2)
Quarter: 2016Q1

REPORT INFORMATION
  Report Type: Report from Study
  Country: US (occurrence: US)
  Receive Date: 20160222
  Receipt Date: 20160317
  Transmission Date: 20160526
  Serious: Yes (Hospitalization)
  Sender: FDA-Public Use
  Company Number: US-ACTELION-A-NJ2016-131580

PATIENT
  Age: 8 Year
  Sex: Male

DRUGS (5)
  1. TRACLEER [Suspect]
     Active Substance: BOSENTAN
     Indication: PULMONARY ARTERIAL HYPERTENSION
     Dosage: 48 MG, BID
     Route: 048
     Dates: start: 201302
  2. LASIX [Concomitant]
     Active Substance: FUROSEMIDE
     Dosage: 10 MG, BID
  3. CARVEDILOL. [Concomitant]
     Active Substance: CARVEDILOL
  4. ALDACTONE [Concomitant]
     Active Substance: SPIRONOLACTONE
     Dosage: 25 MG, BID
  5. ENALAPRIL [Concomitant]
     Active Substance: ENALAPRIL
     Dosage: 3 MG, BID

REACTIONS (2)
  - Pulmonary vein stenosis [Recovered/Resolved]
  - Cardiac operation [Recovered/Resolved]

NARRATIVE: CASE EVENT DATE: 20150626
